FAERS Safety Report 8200739-6 (Version None)
Quarter: 2012Q1

REPORT INFORMATION
  Report Type: 
  Country: None (occurrence: None)
  Receive Date: 20120229
  Receipt Date: 20120214
  Transmission Date: 20120608
  Serious: Yes (Other)
  Sender: FDA-Public Use
  Company Number: 2012AA000121

PATIENT
  Age: 59 Year
  Sex: Male

DRUGS (2)
  1. MICARDIS [Concomitant]
  2. PHARMALGEN (801) APIS MELLIFERA (PHARMALGEN (801) APIS MELLIFERA) [Suspect]
     Indication: HYPERSENSITIVITY
     Dosage: 100 MICROGRAMS;MONTHLY; SUBCUTANEOUS
     Route: 058
     Dates: start: 20110601, end: 20120117

REACTIONS (2)
  - PRURITUS GENERALISED [None]
  - ANAPHYLACTIC SHOCK [None]
